FAERS Safety Report 5877395-5 (Version None)
Quarter: 2008Q3

REPORT INFORMATION
  Report Type: 
  Country: None (occurrence: None)
  Receive Date: 20080909
  Receipt Date: 20080827
  Transmission Date: 20090109
  Serious: Yes (Hospitalization)
  Sender: FDA-Public Use
  Company Number: CHPA2008US14561

PATIENT
  Age: 67 Year
  Sex: Female
  Weight: 81.6 kg

DRUGS (1)
  1. BENEFIBER FIBER SUPP VIT B + COLIC ACID(WHEAT DEXTRIN) CAPLET [Suspect]
     Indication: NUTRITIONAL SUPPORT
     Dosage: 2 DF, BID, ORAL
     Route: 048
     Dates: start: 20080822, end: 20080826

REACTIONS (1)
  - PNEUMONIA [None]
